FAERS Safety Report 6177097-4 (Version None)
Quarter: 2009Q2

REPORT INFORMATION
  Report Type: 
  Country: None (occurrence: None)
  Receive Date: 20090504
  Receipt Date: 20090428
  Transmission Date: 20091009
  Serious: Yes (Other)
  Sender: FDA-Public Use
  Company Number: BR-JNJFOC-20090307648

PATIENT
  Sex: Female
  Weight: 66 kg

DRUGS (1)
  1. ORTHO EVRA [Suspect]
     Indication: CONTRACEPTION
     Dosage: NORELGESTROMIN (6 MG) / ETHINYL ESTRADIOL (0.6 MG)
     Route: 062

REACTIONS (4)
  - CERVICITIS [None]
  - PRODUCT QUALITY ISSUE [None]
  - VAGINITIS BACTERIAL [None]
  - WRONG TECHNIQUE IN DRUG USAGE PROCESS [None]
